FAERS Safety Report 15755138 (Version 1)
Quarter: 2018Q4

REPORT INFORMATION
  Report Type: Spontaneous
  Country: GR (occurrence: GR)
  Receive Date: 20181224
  Receipt Date: 20181224
  Transmission Date: 20190205
  Serious: Yes (Disabling)
  Sender: FDA-Public Use
  Company Number: GR-ABBVIE-18S-066-2602043-00

PATIENT
  Age: 54 Year
  Sex: Male
  Weight: 95 kg

DRUGS (9)
  1. NEXIUM [Concomitant]
     Active Substance: ESOMEPRAZOLE MAGNESIUM
     Indication: CORONARY ARTERY DISEASE
     Dosage: UNK
     Route: 048
  2. LIPIDIL [Suspect]
     Active Substance: FENOFIBRATE
     Indication: HYPERCHOLESTEROLAEMIA
     Dosage: UNK
     Route: 048
  3. CRESTOR [Suspect]
     Active Substance: ROSUVASTATIN CALCIUM
     Indication: HYPERCHOLESTEROLAEMIA
     Dosage: UNK
     Route: 048
  4. BETAXOLOL. [Concomitant]
     Active Substance: BETAXOLOL
     Indication: CORONARY ARTERY DISEASE
     Dosage: UNK
     Route: 048
  5. ZOCOR [Suspect]
     Active Substance: SIMVASTATIN
     Indication: HYPERCHOLESTEROLAEMIA
     Route: 048
     Dates: start: 201406
  6. SALOSPIR [Concomitant]
     Active Substance: ASPIRIN
     Indication: CORONARY ARTERY DISEASE
     Dosage: UNK
     Route: 048
  7. LIPITOR [Suspect]
     Active Substance: ATORVASTATIN CALCIUM
     Indication: HYPERCHOLESTEROLAEMIA
     Dosage: UNK
     Route: 048
  8. EZETROL [Suspect]
     Active Substance: EZETIMIBE
     Indication: HYPERCHOLESTEROLAEMIA
     Dosage: UNK
     Route: 048
  9. EFIENT [Concomitant]
     Active Substance: PRASUGREL HYDROCHLORIDE
     Indication: CORONARY ARTERY DISEASE
     Dosage: UNK
     Route: 048

REACTIONS (3)
  - Movement disorder [Unknown]
  - Myalgia [Unknown]
  - Muscle spasms [Unknown]

NARRATIVE: CASE EVENT DATE: 201407
